FAERS Safety Report 7060217-7 (Version None)
Quarter: 2010Q4

REPORT INFORMATION
  Report Type: 
  Country: None (occurrence: None)
  Receive Date: 20101025
  Receipt Date: 20101020
  Transmission Date: 20110411
  Serious: Yes (Hospitalization)
  Sender: FDA-Public Use
  Company Number: US-MERCK-1010USA01140

PATIENT
  Age: 49 Year
  Sex: Female

DRUGS (8)
  1. ZOCOR [Suspect]
     Indication: BLOOD CHOLESTEROL
     Route: 048
     Dates: start: 20100913, end: 20101001
  2. MAXALT [Concomitant]
     Indication: MIGRAINE
     Route: 065
     Dates: start: 20100927
  3. DIOVAN [Concomitant]
     Route: 065
  4. TRAZODONE HYDROCHLORIDE [Concomitant]
     Route: 065
  5. SEROQUEL [Concomitant]
     Route: 065
  6. CYMBALTA [Concomitant]
     Route: 065
  7. CYMBALTA [Concomitant]
     Route: 065
  8. FLOMAX [Concomitant]
     Route: 065

REACTIONS (6)
  - ABDOMINAL PAIN UPPER [None]
  - ADVERSE EVENT [None]
  - CONFUSIONAL STATE [None]
  - DIZZINESS [None]
  - MUSCLE SPASMS [None]
  - OVERDOSE [None]
